FAERS Safety Report 23258094 (Version 2)
Quarter: 2024Q1

REPORT INFORMATION
  Report Type: Report from Study
  Country: US (occurrence: US)
  Receive Date: 20231204
  Receipt Date: 20240315
  Transmission Date: 20240410
  Serious: No
  Sender: FDA-Public Use
  Company Number: US-SA-SAC20231123000315

PATIENT
  Age: 11 Year
  Sex: Male

DRUGS (3)
  1. DUPILUMAB [Suspect]
     Active Substance: DUPILUMAB
     Indication: Dermatitis atopic
     Dosage: 200 MG, QOW
     Route: 058
  2. DUPILUMAB [Suspect]
     Active Substance: DUPILUMAB
     Indication: Asthma
     Dosage: 600 MG, 1X
     Route: 058
  3. DUPILUMAB [Suspect]
     Active Substance: DUPILUMAB
     Dosage: 300 MG, QOW
     Route: 058

REACTIONS (3)
  - Feeling abnormal [Unknown]
  - Incorrect dose administered [Unknown]
  - Off label use [Unknown]

NARRATIVE: CASE EVENT DATE: 20240307
